FAERS Safety Report 21663737 (Version 8)
Quarter: 2025Q4

REPORT INFORMATION
  Report Type: Spontaneous
  Country: US (occurrence: US)
  Receive Date: 20221130
  Receipt Date: 20251111
  Transmission Date: 20260117
  Serious: No
  Sender: BIOGEN
  Company Number: US-BIOGEN-2022BI01171453

PATIENT
  Sex: Female

DRUGS (6)
  1. VUMERITY [Suspect]
     Active Substance: DIROXIMEL FUMARATE
     Indication: Multiple sclerosis
     Dosage: DOSAGE TEXT:START DATE ALSO REPORTED AS 22-FEB-2021
     Dates: start: 20210216, end: 20210222
  2. VUMERITY [Suspect]
     Active Substance: DIROXIMEL FUMARATE
     Dates: start: 20210301
  3. VUMERITY [Suspect]
     Active Substance: DIROXIMEL FUMARATE
     Dates: start: 202408
  4. VUMERITY [Suspect]
     Active Substance: DIROXIMEL FUMARATE
     Dates: start: 20210223
  5. VUMERITY [Suspect]
     Active Substance: DIROXIMEL FUMARATE
     Dates: end: 202510
  6. VUMERITY [Suspect]
     Active Substance: DIROXIMEL FUMARATE

REACTIONS (12)
  - White blood cell count decreased [Not Recovered/Not Resolved]
  - Blood test abnormal [Unknown]
  - CD4 lymphocyte percentage decreased [Unknown]
  - Lymphocyte percentage decreased [Unknown]
  - CD3 lymphocytes decreased [Unknown]
  - Hepatic enzyme abnormal [Unknown]
  - Lymphocyte count decreased [Unknown]
  - COVID-19 [Recovered/Resolved]
  - Influenza [Recovered/Resolved]
  - CD4 lymphocytes decreased [Unknown]
  - CD4/CD8 ratio decreased [Unknown]
  - Natural killer cell count increased [Unknown]

NARRATIVE: CASE EVENT DATE: 20220101
